FAERS Safety Report 16745041 (Version 1)
Quarter: 2019Q3

REPORT INFORMATION
  Report Type: Spontaneous
  Country: JP (occurrence: JP)
  Receive Date: 20190827
  Receipt Date: 20190827
  Transmission Date: 20191005
  Serious: Yes (Other)
  Sender: FDA-Public Use
  Company Number: JP-ELI_LILLY_AND_COMPANY-JP201908000800

PATIENT
  Age: 64 Year
  Sex: Female

DRUGS (3)
  1. VERZENIO [Suspect]
     Active Substance: ABEMACICLIB
     Indication: PRODUCT USED FOR UNKNOWN INDICATION
     Dosage: UNK
     Route: 048
     Dates: start: 20190124, end: 20190129
  2. VERZENIO [Suspect]
     Active Substance: ABEMACICLIB
     Dosage: UNK
     Route: 048
     Dates: start: 20190207, end: 20190216
  3. FASLODEX [Concomitant]
     Active Substance: FULVESTRANT

REACTIONS (5)
  - Hypokalaemia [Unknown]
  - Weight decreased [Unknown]
  - Pyrexia [Unknown]
  - Diarrhoea [Unknown]
  - Hydronephrosis [Unknown]

NARRATIVE: CASE EVENT DATE: 20190130
